FAERS Safety Report 5268812-2 (Version None)
Quarter: 2007Q1

REPORT INFORMATION
  Report Type: 
  Country: None (occurrence: None)
  Receive Date: 20070313
  Receipt Date: 20061120
  Transmission Date: 20070707
  Serious: Yes (Hospitalization)
  Sender: FDA-Public Use
  Company Number: 2007BI004944

PATIENT
  Sex: Female
  Weight: 59.5 kg

DRUGS (7)
  1. AVONEX [Suspect]
     Indication: MULTIPLE SCLEROSIS
     Dosage: 30 UG; QW; IM
     Route: 030
     Dates: start: 20050301
  2. BACLOFEN [Concomitant]
  3. TEGRETOL [Concomitant]
  4. RANITIDINE [Concomitant]
  5. ZOLADEX [Concomitant]
  6. TIBOLONE [Concomitant]
  7. OMEGA 3 [Concomitant]

REACTIONS (4)
  - DRUG DOSE OMISSION [None]
  - HAEMOGLOBIN DECREASED [None]
  - MULTIPLE SCLEROSIS RELAPSE [None]
  - OVARIAN CYST [None]
